FAERS Safety Report 9841732 (Version 4)
Quarter: 2014Q2

REPORT INFORMATION
  Report Type: Spontaneous
  Country: US (occurrence: US)
  Receive Date: 20140124
  Receipt Date: 20140617
  Transmission Date: 20141212
  Serious: Yes (Other)
  Sender: FDA-Public Use
  Company Number: US-JNJFOC-20131116450

PATIENT
  Age: 80 Year
  Sex: Male

DRUGS (14)
  1. XARELTO [Suspect]
     Indication: THROMBOSIS
     Route: 048
     Dates: start: 20131210
  2. XARELTO [Suspect]
     Indication: THROMBOSIS
     Route: 048
     Dates: start: 20131126
  3. XARELTO [Suspect]
     Indication: THROMBOSIS
     Route: 048
     Dates: start: 20131113, end: 20131121
  4. BAYER PLUS [Suspect]
     Indication: PRODUCT USED FOR UNKNOWN INDICATION
     Dosage: DAILY
     Route: 065
     Dates: end: 20131121
  5. BAYER PLUS [Suspect]
     Indication: PRODUCT USED FOR UNKNOWN INDICATION
     Route: 065
     Dates: start: 20131229
  6. OMEPRAZOLE [Concomitant]
     Dosage: DAILY
     Route: 065
  7. METOPROLOL [Concomitant]
     Indication: PRODUCT USED FOR UNKNOWN INDICATION
     Dosage: DAILY
     Route: 065
  8. ACTOPLUS MET [Concomitant]
     Dosage: 15/850MG, DAILY
     Route: 065
  9. SIMVASTATIN [Concomitant]
     Dosage: IN THE EVENING, DAILY
     Route: 065
  10. CALCIUM [Concomitant]
     Dosage: 600PLUS, DAILY
     Route: 065
  11. BYETTA [Concomitant]
     Indication: DIABETES MELLITUS
     Route: 065
  12. NASONEX [Concomitant]
     Indication: SINUS DISORDER
     Route: 065
  13. BENADRYL [Concomitant]
     Indication: PRODUCT USED FOR UNKNOWN INDICATION
     Route: 065
  14. ANDROGEL [Concomitant]
     Indication: PRODUCT USED FOR UNKNOWN INDICATION
     Route: 065

REACTIONS (4)
  - Nephrolithiasis [Unknown]
  - Blood urine present [Recovered/Resolved]
  - Wrong technique in drug usage process [Recovered/Resolved]
  - Drug dose omission [Unknown]
